FAERS Safety Report 6174412-2 (Version None)
Quarter: 2009Q2

REPORT INFORMATION
  Report Type: 
  Country: None (occurrence: None)
  Receive Date: 20090430
  Receipt Date: 20080731
  Transmission Date: 20091009
  Serious: No
  Sender: FDA-Public Use
  Company Number: US-ASTRAZENECA-2008UW10748

PATIENT
  Age: 82 Year
  Sex: Female

DRUGS (10)
  1. NEXIUM [Suspect]
     Indication: HYPERSENSITIVITY
     Route: 048
  2. NEXIUM [Suspect]
     Indication: COUGH
     Route: 048
  3. NEXIUM [Suspect]
     Indication: GASTROOESOPHAGEAL REFLUX DISEASE
     Route: 048
  4. NEXIUM [Suspect]
     Indication: THROAT IRRITATION
     Route: 048
  5. ADVAIR HFA [Concomitant]
  6. SINGULAIR [Concomitant]
  7. FLONASE [Concomitant]
  8. LIPITOR [Concomitant]
  9. ATENOLOL [Concomitant]
     Route: 048
  10. WATER PILL [Concomitant]

REACTIONS (3)
  - COUGH [None]
  - DYSPHONIA [None]
  - FUNGAL OESOPHAGITIS [None]
